FAERS Safety Report 9144338 (Version 3)
Quarter: 2013Q3

REPORT INFORMATION
  Report Type: Spontaneous
  Country: US (occurrence: US)
  Receive Date: 20130306
  Receipt Date: 20130802
  Transmission Date: 20140515
  Serious: Yes (Other)
  Sender: FDA-Public Use
  Company Number: US-ROCHE-791959

PATIENT
  Age: 21 Year
  Sex: Female
  Weight: 56.75 kg

DRUGS (8)
  1. ACCUTANE [Suspect]
     Indication: ACNE
     Route: 065
     Dates: start: 2002, end: 2003
  2. ACCUTANE [Suspect]
     Route: 065
     Dates: start: 200201, end: 200205
  3. SOTRET [Suspect]
     Indication: ACNE
     Route: 065
     Dates: start: 2008, end: 2009
  4. SOTRET [Suspect]
     Route: 065
     Dates: start: 200801, end: 200805
  5. AMNESTEEM [Suspect]
     Indication: ACNE
     Route: 065
     Dates: start: 200411, end: 200412
  6. KARIVA [Concomitant]
  7. NUVARING [Concomitant]
  8. YASMIN [Concomitant]

REACTIONS (7)
  - Crohn^s disease [Unknown]
  - Inflammatory bowel disease [Unknown]
  - Emotional distress [Not Recovered/Not Resolved]
  - Proctitis ulcerative [Unknown]
  - Anal fissure [Recovered/Resolved]
  - Large intestine polyp [Unknown]
  - Irritable bowel syndrome [Unknown]
